FAERS Safety Report 10196959 (Version 1)
Quarter: 2014Q2

REPORT INFORMATION
  Report Type: Spontaneous
  Country: US (occurrence: US)
  Receive Date: 20140527
  Receipt Date: 20140527
  Transmission Date: 20141212
  Serious: Yes (Other)
  Sender: FDA-Public Use
  Company Number: US-PFIZER INC-2014142984

PATIENT
  Age: 61 Year
  Sex: Female
  Weight: 72.56 kg

DRUGS (4)
  1. PREMARIN [Suspect]
     Indication: PRECANCEROUS CELLS PRESENT
     Dosage: 0.5 G, 2X/WEEK
     Route: 067
  2. SOMA [Concomitant]
     Indication: FIBROMYALGIA
     Dosage: 350 MG, AS NEEDED (ONE OR THREE TIMES A DAY)
  3. HYDROCODONE W/ACETAMINOPHEN [Concomitant]
     Indication: PAIN
     Dosage: HYDROCODONE 5 MG/ ACETAMINOPHEN 325 MG
  4. PRAVASTATIN [Concomitant]
     Indication: BLOOD CHOLESTEROL INCREASED
     Dosage: UNK

REACTIONS (1)
  - Hypertension [Unknown]
